FAERS Safety Report 6406654-2 (Version None)
Quarter: 2009Q4

REPORT INFORMATION
  Report Type: 
  Country: None (occurrence: None)
  Receive Date: 20091020
  Receipt Date: 20091009
  Transmission Date: 20100525
  Serious: Yes (Hospitalization)
  Sender: FDA-Public Use
  Company Number: US-BIOGENIDEC-138810

PATIENT
  Age: 59 Year
  Sex: Female
  Weight: 90 kg

DRUGS (4)
  1. AVONEX [Suspect]
     Indication: MULTIPLE SCLEROSIS
     Route: 030
     Dates: start: 19980101, end: 20000605
  2. PROZAC [Concomitant]
     Indication: DEPRESSION
     Dates: start: 19991001
  3. SYNTHROID [Concomitant]
     Indication: HYPOTHYROIDISM
  4. VIOXX [Concomitant]
     Indication: ARTHRITIS
     Dates: start: 20000501

REACTIONS (4)
  - LIGAMENT INJURY [None]
  - PATHOLOGICAL FRACTURE [None]
  - SCAR [None]
  - WOUND INFECTION STAPHYLOCOCCAL [None]
